FAERS Safety Report 7436768-X (Version None)
Quarter: 2011Q2

REPORT INFORMATION
  Report Type: 
  Country: None (occurrence: None)
  Receive Date: 20110426
  Receipt Date: 20110412
  Transmission Date: 20111010
  Serious: Yes (Life-Threatening, Hospitalization)
  Sender: FDA-Public Use
  Company Number: JP-JNJFOC-20110104225

PATIENT
  Age: 60 Year
  Sex: Female
  Weight: 50 kg

DRUGS (16)
  1. REMICADE [Suspect]
     Route: 042
  2. PREDNISOLONE [Suspect]
     Route: 048
  3. PREDNISOLONE [Suspect]
     Route: 048
  4. ACTONEL [Concomitant]
     Route: 048
  5. FOLIC ACID [Concomitant]
     Route: 048
  6. STOGAR [Concomitant]
     Route: 048
  7. REMICADE [Suspect]
     Route: 042
  8. CELECOX [Concomitant]
     Route: 048
  9. REMICADE [Suspect]
     Indication: RHEUMATOID ARTHRITIS
     Route: 042
  10. REMICADE [Suspect]
     Route: 042
  11. PREDNISOLONE [Suspect]
     Route: 048
  12. REMICADE [Suspect]
     Route: 042
  13. REMICADE [Suspect]
     Route: 042
  14. RHEUMATREX [Suspect]
     Indication: RHEUMATOID ARTHRITIS
     Route: 048
  15. PREDNISOLONE [Suspect]
     Indication: PRODUCT USED FOR UNKNOWN INDICATION
     Route: 048
  16. PREDNISOLONE [Suspect]
     Route: 048

REACTIONS (4)
  - ASCITES [None]
  - HEPATIC FUNCTION ABNORMAL [None]
  - PULMONARY TUBERCULOSIS [None]
  - PNEUMOCYSTIS TEST POSITIVE [None]
